FAERS Safety Report 7265435-0 (Version None)
Quarter: 2011Q1

REPORT INFORMATION
  Report Type: 
  Country: None (occurrence: None)
  Receive Date: 20110131
  Receipt Date: 20110119
  Transmission Date: 20110831
  Serious: Yes (Other)
  Sender: FDA-Public Use
  Company Number: PHHY2011BR04836

PATIENT
  Sex: Female

DRUGS (9)
  1. DIOVAN [Suspect]
     Indication: HYPERTENSION
     Dosage: 320 MG, 0.5 TABLET DIALY
     Route: 048
  2. FLUOXETINE [Concomitant]
     Dosage: 1 DF, QD
     Route: 048
     Dates: start: 20070101
  3. METFORMIN HCL [Concomitant]
     Indication: DIABETES MELLITUS
     Dosage: 3 DF, QD
     Dates: start: 19970101
  4. CELEBRA [Concomitant]
     Indication: PAIN
     Dosage: 1 DF, BID
     Route: 048
     Dates: start: 20101001
  5. ACTOS [Concomitant]
     Indication: DIABETES MELLITUS
     Dosage: 1 DF, QD
     Route: 048
     Dates: start: 20110120
  6. AMARYL [Concomitant]
     Indication: DIABETES MELLITUS
     Dosage: 1 DF, QD
     Route: 048
     Dates: start: 20010101
  7. NOVOMIX [Concomitant]
     Indication: DIABETES MELLITUS
     Dosage: 12 IU, UNK
     Dates: start: 20100301
  8. DIOVAN [Suspect]
     Dosage: 320 MG, 1 TABLET DAILY
     Route: 048
  9. ACETYLSALICYLIC ACID SRT [Concomitant]
     Indication: ANTICOAGULANT THERAPY
     Dosage: 1 DF, QD
     Route: 048
     Dates: start: 20010101

REACTIONS (3)
  - HEADACHE [None]
  - INCORRECT DOSE ADMINISTERED [None]
  - HYPERTENSION [None]
